FAERS Safety Report 23208661 (Version 1)
Quarter: 2023Q4

REPORT INFORMATION
  Report Type: Other
  Country: US (occurrence: None)
  Receive Date: 20231121
  Receipt Date: 20231121
  Transmission Date: 20240109
  Serious: Yes (Other)
  Sender: FDA-Public Use
  Company Number: US-ROCHE-3349970

PATIENT
  Age: 70 Year
  Sex: Female

DRUGS (7)
  1. VABYSMO [Suspect]
     Active Substance: FARICIMAB\FARICIMAB-SVOA
     Indication: Retinal oedema
     Route: 050
     Dates: start: 202301
  2. VABYSMO [Suspect]
     Active Substance: FARICIMAB\FARICIMAB-SVOA
     Indication: Eye inflammation
  3. VABYSMO [Suspect]
     Active Substance: FARICIMAB\FARICIMAB-SVOA
     Indication: Visual impairment
  4. VABYSMO [Suspect]
     Active Substance: FARICIMAB\FARICIMAB-SVOA
     Indication: Malignant melanoma
  5. AVASTIN [Suspect]
     Active Substance: BEVACIZUMAB
     Indication: Eye inflammation
     Route: 050
  6. AVASTIN [Suspect]
     Active Substance: BEVACIZUMAB
     Indication: Visual impairment
  7. AVASTIN [Suspect]
     Active Substance: BEVACIZUMAB
     Indication: Malignant melanoma

REACTIONS (3)
  - Retinal detachment [Unknown]
  - Vision blurred [Recovering/Resolving]
  - Off label use [Unknown]

NARRATIVE: CASE EVENT DATE: 20230505
